FAERS Safety Report 20462746 (Version 2)
Quarter: 2022Q1

REPORT INFORMATION
  Report Type: Spontaneous
  Country: CN (occurrence: CN)
  Receive Date: 20220211
  Receipt Date: 20220222
  Transmission Date: 20220423
  Serious: Yes (Hospitalization)
  Sender: FDA-Public Use
  Company Number: CN-CELGENE-CHN-20220201747

PATIENT
  Age: 68 Year
  Sex: Male
  Weight: 72 kg

DRUGS (16)
  1. AZACITIDINE [Suspect]
     Active Substance: AZACITIDINE
     Indication: Myelodysplastic syndrome
     Dosage: 75 MILLIGRAM/SQ. METER
     Route: 058
     Dates: start: 20210723
  2. VENETOCLAX [Suspect]
     Active Substance: VENETOCLAX
     Indication: Myelodysplastic syndrome
     Route: 048
     Dates: start: 20210723
  3. URSODIOL [Concomitant]
     Active Substance: URSODIOL
     Indication: Blood bilirubin increased
     Dosage: 250 MILLIGRAM
     Route: 048
     Dates: start: 20210814
  4. ESTAZOLAM [Concomitant]
     Active Substance: ESTAZOLAM
     Indication: Insomnia
     Dosage: 1 MILLIGRAM
     Route: 048
     Dates: start: 20220103
  5. CEFDINIR [Concomitant]
     Active Substance: CEFDINIR
     Indication: Laryngeal pain
     Dosage: 300 MILLIGRAM
     Route: 048
     Dates: start: 20220122, end: 20220127
  6. LIDOCAINE HYDROCHLORIDE [Concomitant]
     Active Substance: LIDOCAINE HYDROCHLORIDE
     Indication: Mouth ulceration
     Dosage: .1 GRAM
     Route: 065
     Dates: start: 20220127, end: 20220127
  7. VITAMIN B2 [Concomitant]
     Active Substance: RIBOFLAVIN
     Indication: Mouth ulceration
     Dosage: 10 MILLIGRAM
     Route: 061
     Dates: start: 20220127, end: 20220127
  8. VITAMIN B12 [Concomitant]
     Active Substance: CYANOCOBALAMIN
     Indication: Mouth ulceration
     Dosage: 1000 MICROGRAM
     Route: 061
     Dates: start: 20220127, end: 20220127
  9. VITAMIN C [Concomitant]
     Active Substance: ASCORBIC ACID
     Indication: Fluid replacement
     Dosage: 2000 MILLIGRAM
     Route: 041
     Dates: start: 20220127
  10. CALCIUM GLUCONATE [Concomitant]
     Active Substance: CALCIUM GLUCONATE
     Indication: Hypersensitivity
     Dosage: 100 MICROGRAM
     Route: 041
     Dates: start: 20220127, end: 20220127
  11. CALCIUM GLUCONATE [Concomitant]
     Active Substance: CALCIUM GLUCONATE
     Indication: Laryngeal pain
  12. FILGRASTIM [Concomitant]
     Active Substance: FILGRASTIM
     Indication: White blood cell count decreased
     Dosage: 100 MICROGRAM
     Route: 058
     Dates: start: 20220114, end: 20220114
  13. FILGRASTIM [Concomitant]
     Active Substance: FILGRASTIM
     Indication: Laryngeal pain
  14. RHGM-CSF [Concomitant]
     Indication: Laryngeal pain
     Dosage: 100 MICROGRAM
     Route: 061
     Dates: start: 20220125
  15. YU XING CAO DIBIYE [Concomitant]
     Indication: Nasal dryness
     Route: 061
     Dates: start: 20220125
  16. HUMAN RED BLOOD CELL [Concomitant]
     Active Substance: HUMAN RED BLOOD CELL
     Indication: Myelodysplastic syndrome
     Route: 065
     Dates: start: 20220127, end: 20220127

REACTIONS (1)
  - Pneumonia [Recovering/Resolving]

NARRATIVE: CASE EVENT DATE: 20220127
